FAERS Safety Report 14352137 (Version 4)
Quarter: 2019Q1

REPORT INFORMATION
  Report Type: Spontaneous
  Country: US (occurrence: US)
  Receive Date: 20180104
  Receipt Date: 20190218
  Transmission Date: 20190417
  Serious: No
  Sender: FDA-Public Use
  Company Number: US-PFIZER INC-2017551654

PATIENT
  Age: 67 Year
  Sex: Female

DRUGS (1)
  1. IBRANCE [Suspect]
     Active Substance: PALBOCICLIB
     Indication: BREAST CANCER FEMALE
     Dosage: 125 MG, CYCLIC (DAILY DAY 1-21 OF 28 DAY)
     Dates: start: 2017

REACTIONS (6)
  - Neutrophil count decreased [Unknown]
  - Lacrimation increased [Unknown]
  - Visual impairment [Unknown]
  - Night sweats [Unknown]
  - Sensitivity to weather change [Unknown]
  - Hot flush [Unknown]
